FAERS Safety Report 6162799-6 (Version None)
Quarter: 2009Q2

REPORT INFORMATION
  Report Type: 
  Country: None (occurrence: None)
  Receive Date: 20090421
  Receipt Date: 20090421
  Transmission Date: 20091009
  Serious: Yes (Other)
  Sender: FDA-Public Use
  Company Number: CA-ABBOTT-09P-028-0561478-00

PATIENT
  Sex: Male
  Weight: 76.726 kg

DRUGS (20)
  1. HUMIRA [Suspect]
     Indication: RHEUMATOID ARTHRITIS
     Route: 058
     Dates: start: 20070419, end: 20090319
  2. HYDROCHLOROTHIAZIDE [Concomitant]
     Indication: DRUG USE FOR UNKNOWN INDICATION
  3. FUROSEMIDE [Concomitant]
     Indication: HYPERTENSION
  4. NORVASC [Concomitant]
     Indication: HYPERTENSION
  5. RAMIPRIL [Concomitant]
     Indication: DRUG USE FOR UNKNOWN INDICATION
  6. AVAPRO [Concomitant]
     Indication: HYPERTENSION
  7. ANDRIOL [Concomitant]
     Indication: DRUG USE FOR UNKNOWN INDICATION
  8. PREDNISONE [Concomitant]
     Indication: NEPHROTIC SYNDROME
     Dosage: 1 1/2 A DAY
  9. PREDNISONE [Concomitant]
     Indication: GLOMERULONEPHRITIS MINIMAL LESION
  10. ALENDRONATE [Concomitant]
     Indication: GLOMERULONEPHRITIS MINIMAL LESION
     Dosage: 1 @ WEEK -1/2 HOUR + NO EATING AFTERWARD)
  11. ALENDRONATE [Concomitant]
     Indication: NEPHROTIC SYNDROME
  12. ALENDRONATE [Concomitant]
     Indication: BONE DISORDER
  13. RANITIDINE HCL [Concomitant]
     Indication: GLOMERULONEPHRITIS MINIMAL LESION
     Dosage: 1 OR 2 A DAY
  14. RANITIDINE HCL [Concomitant]
     Indication: NEPHROTIC SYNDROME
  15. RANITIDINE HCL [Concomitant]
     Indication: GASTROOESOPHAGEAL REFLUX DISEASE
  16. OXAZEPAM [Concomitant]
     Indication: INSOMNIA
     Dosage: 1 AT BEDTIME - OPTIONAL
  17. COD LIVER OIL [Concomitant]
     Indication: DRUG USE FOR UNKNOWN INDICATION
  18. MULTI-VITAMIN [Concomitant]
     Indication: DRUG USE FOR UNKNOWN INDICATION
  19. VITAMIN D [Concomitant]
     Indication: DRUG USE FOR UNKNOWN INDICATION
  20. CALCIUM [Concomitant]
     Indication: DRUG USE FOR UNKNOWN INDICATION

REACTIONS (9)
  - ALBUMIN URINE PRESENT [None]
  - BLOOD CREATINE INCREASED [None]
  - GLOMERULONEPHRITIS MINIMAL LESION [None]
  - NEPHROTIC SYNDROME [None]
  - OEDEMA PERIPHERAL [None]
  - PROTEIN TOTAL DECREASED [None]
  - PROTEIN URINE PRESENT [None]
  - URINARY TRACT DISORDER [None]
  - URINE ANALYSIS ABNORMAL [None]
